FAERS Safety Report 5402902-6 (Version None)
Quarter: 2007Q3

REPORT INFORMATION
  Report Type: 
  Country: None (occurrence: None)
  Receive Date: 20070801
  Receipt Date: 20070723
  Transmission Date: 20080115
  Serious: Yes (Other)
  Sender: FDA-Public Use
  Company Number: GB-AMGEN-US236342

PATIENT
  Age: 67 Year
  Sex: Female
  Weight: 61.8 kg

DRUGS (4)
  1. ENBREL [Suspect]
     Indication: RHEUMATOID ARTHRITIS
     Dosage: 50MG, FREQUENCY UNKNOWN
     Route: 058
     Dates: start: 20070515, end: 20070706
  2. GABAPENTIN [Concomitant]
     Route: 048
  3. RABEPRAZOLE SODIUM [Concomitant]
     Dosage: 20MG, FREQUENCY UNKNOWN
     Route: 048
  4. FELODIPINE [Concomitant]
     Indication: HYPERTENSION
     Dosage: 10MG, FREQUENCY UNKNOWN
     Route: 048

REACTIONS (2)
  - CARDIAC FAILURE [None]
  - RALES [None]
